FAERS Safety Report 8320412-3 (Version None)
Quarter: 2012Q2

REPORT INFORMATION
  Report Type: 
  Country: None (occurrence: None)
  Receive Date: 20120430
  Receipt Date: 20120425
  Transmission Date: 20120825
  Serious: Yes (Other)
  Sender: FDA-Public Use
  Company Number: TR-BAYER-2012-040047

PATIENT
  Age: 23 Year
  Sex: Female

DRUGS (8)
  1. ADRIAMYCIN PFS [Suspect]
     Indication: HODGKIN'S DISEASE
  2. ADRIAMYCIN PFS [Suspect]
     Indication: CHEMOTHERAPY MULTIPLE AGENTS SYSTEMIC
     Dosage: 25 MG/M2, 5 COURSES AT 4-WEEK INTERVAL
     Route: 042
  3. DACARBAZINE [Suspect]
     Indication: HODGKIN'S DISEASE
  4. DACARBAZINE [Suspect]
     Indication: CHEMOTHERAPY MULTIPLE AGENTS SYSTEMIC
     Dosage: 375 MG/M2, 5 COURSES AT 4-WEEK INTERVAL
     Route: 042
  5. VINCRISTINE [Suspect]
     Indication: CHEMOTHERAPY MULTIPLE AGENTS SYSTEMIC
     Dosage: 1.4 MG/M2, 5 COURSES AT 4-WEEK INTERVAL
     Route: 042
  6. BLEOMYCIN SULFATE [Suspect]
     Indication: CHEMOTHERAPY MULTIPLE AGENTS SYSTEMIC
     Dosage: 10 MG/M2, 5 COURSES AT 4-WEEK INTERVAL
     Route: 042
  7. BLEOMYCIN SULFATE [Suspect]
     Indication: HODGKIN'S DISEASE
  8. VINCRISTINE [Suspect]
     Indication: HODGKIN'S DISEASE

REACTIONS (2)
  - HEPATITIS C [None]
  - HEPATIC FAILURE [None]
